FAERS Safety Report 4917721-4 (Version None)
Quarter: 2006Q1

REPORT INFORMATION
  Report Type: 
  Country: None (occurrence: None)
  Receive Date: 20060215
  Receipt Date: 20060130
  Transmission Date: 20060701
  Serious: Yes (Hospitalization)
  Sender: FDA-Public Use
  Company Number: 221766

PATIENT
  Age: 60 Year
  Sex: Female
  Weight: 65 kg

DRUGS (4)
  1. AVASTIN [Suspect]
     Indication: COLORECTAL CANCER METASTATIC
     Dosage: 488 MG, Q3W, INTRAVENOUS
     Route: 042
     Dates: start: 20060126
  2. AVASTIN [Suspect]
  3. CAPECITABINE (CAPECITABINE) [Suspect]
     Indication: COLORECTAL CANCER METASTATIC
     Dosage: 4000 MG, ORAL
     Route: 048
     Dates: start: 20060126
  4. OXALIPLATIN (OXALIPLATIN) [Suspect]
     Indication: COLORECTAL CANCER METASTATIC
     Dosage: 250 MG, Q3W, INTRAVENOUS
     Route: 042
     Dates: start: 20060126

REACTIONS (3)
  - APHASIA [None]
  - FORMICATION [None]
  - HYPOAESTHESIA [None]
